FAERS Safety Report 15186922 (Version 2)
Quarter: 2019Q1

REPORT INFORMATION
  Report Type: Report from Study
  Country: US (occurrence: US)
  Receive Date: 20180723
  Receipt Date: 20190130
  Transmission Date: 20190417
  Serious: No
  Sender: FDA-Public Use
  Company Number: US-EXELIXIS-CABO-18012594

PATIENT
  Sex: Male

DRUGS (8)
  1. NORVASC [Concomitant]
     Active Substance: AMLODIPINE BESYLATE
  2. CABOMETYX [Suspect]
     Active Substance: CABOZANTINIB S-MALATE
     Indication: RENAL CANCER
     Dosage: 40 MG, QD
     Route: 048
     Dates: start: 20171107
  3. CLARITIN [Concomitant]
     Active Substance: LORATADINE
  4. LASIX [Concomitant]
     Active Substance: FUROSEMIDE
  5. NOVOLIN [Concomitant]
     Active Substance: INSULIN HUMAN
  6. ZESTRIL [Concomitant]
     Active Substance: LISINOPRIL
  7. ZOCOR [Concomitant]
     Active Substance: SIMVASTATIN
  8. REMERON [Concomitant]
     Active Substance: MIRTAZAPINE

REACTIONS (5)
  - Blood pressure increased [Unknown]
  - Tinnitus [Unknown]
  - Dizziness [Unknown]
  - Abdominal discomfort [Unknown]
  - Peripheral swelling [Unknown]
